FAERS Safety Report 24122198 (Version 1)
Quarter: 2024Q3

REPORT INFORMATION
  Report Type: Other
  Country: US (occurrence: US)
  Receive Date: 20240722
  Receipt Date: 20240722
  Transmission Date: 20241017
  Serious: Yes (Death, Hospitalization, Other)
  Sender: BIONPHARMA
  Company Number: US-Bion-013486

PATIENT
  Age: 6 Decade
  Sex: Male

DRUGS (2)
  1. DEXAMETHASONE [Suspect]
     Active Substance: DEXAMETHASONE
     Indication: Cervical radiculopathy
     Dosage: CERVICAL EPIDURAL STEROID INJECTION
  2. LIDOCAINE [Concomitant]
     Active Substance: LIDOCAINE
     Indication: Anaesthesia

REACTIONS (1)
  - Septic shock [Fatal]
